FAERS Safety Report 5335888-3 (Version None)
Quarter: 2007Q1

REPORT INFORMATION
  Report Type: 
  Country: None (occurrence: None)
  Receive Date: 20070301
  Receipt Date: 20061206
  Transmission Date: 20070707
  Serious: Yes (Other)
  Sender: FDA-Public Use
  Company Number: 232656

PATIENT
  Age: 49 Year
  Sex: Male
  Weight: 147.6 kg

DRUGS (7)
  1. NUTROPIN AQ [Suspect]
     Indication: GROWTH HORMONE DEFICIENCY
     Dosage: 0.4 MG, QD, SUBCUTANEOUS
     Route: 058
     Dates: start: 20060401
  2. NUTROPIN AQ [Suspect]
     Indication: GROWTH HORMONE DEFICIENCY
     Dosage: 0.4 MG, QD, SUBCUTANEOUS
     Route: 058
     Dates: start: 20060701
  3. NUTROPIN AQ [Suspect]
  4. LEVOXYL [Concomitant]
  5. METHADONE HCL [Concomitant]
  6. CELEXA [Concomitant]
  7. DEPO TESTOSTERONE (TESTOSTERONE CYPIONATE) [Concomitant]

REACTIONS (1)
  - CARPAL TUNNEL SYNDROME [None]
